FAERS Safety Report 22354740 (Version 1)
Quarter: 2023Q2

REPORT INFORMATION
  Report Type: Spontaneous
  Country: US (occurrence: US)
  Receive Date: 20230523
  Receipt Date: 20230523
  Transmission Date: 20230721
  Serious: Yes (Life-Threatening, Hospitalization, Other)
  Sender: FDA-Public Use
  Company Number: US-ENDO PHARMACEUTICALS INC-2023-001978

PATIENT
  Age: 5 Decade
  Sex: Male

DRUGS (1)
  1. IBUPROFEN [Suspect]
     Active Substance: IBUPROFEN
     Indication: Back pain
     Dosage: UNK UNKNOWN, UNKNOWN (10-12 TABLETS EVERY 4-6 HOURS ALMOST DAILY FOR ABOUT ONE YEAR)
     Route: 048

REACTIONS (5)
  - Hypokalaemia [Recovered/Resolved]
  - Paralysis [Unknown]
  - Intentional product misuse [Unknown]
  - Metabolic acidosis [Recovered/Resolved]
  - Intentional overdose [Unknown]
